FAERS Safety Report 7712280-5 (Version None)
Quarter: 2011Q3

REPORT INFORMATION
  Report Type: 
  Country: None (occurrence: None)
  Receive Date: 20110822
  Receipt Date: 20110809
  Transmission Date: 20111222
  Serious: Yes (Other)
  Sender: FDA-Public Use
  Company Number: TPA2011A04800

PATIENT
  Age: 59 Year
  Sex: Female
  Weight: 77.1115 kg

DRUGS (8)
  1. DEXILANT [Suspect]
     Indication: GASTRIC ULCER
     Dosage: 60 MG, 1 IN 1 D, PER ORAL
     Route: 048
     Dates: start: 20110509, end: 20110726
  2. TRAZODONE HCL [Concomitant]
  3. SYNTHROID [Concomitant]
  4. SIMVASTATIN [Suspect]
     Indication: BLOOD CHOLESTEROL INCREASED
     Dosage: 20 MG, 1 IN 1 D, PER ORAL
     Route: 048
     Dates: start: 20101201, end: 20110101
  5. PLAVIX [Concomitant]
  6. PAXIL [Concomitant]
  7. INSULIN (INSULIN) [Concomitant]
  8. LYRICA [Concomitant]

REACTIONS (5)
  - DIARRHOEA [None]
  - DEPRESSION [None]
  - BONE PAIN [None]
  - MYALGIA [None]
  - SUICIDAL IDEATION [None]
